FAERS Safety Report 15080269 (Version 1)
Quarter: 2018Q2

REPORT INFORMATION
  Report Type: Report from Study
  Country: None (occurrence: CH)
  Receive Date: 20180628
  Receipt Date: 20180628
  Transmission Date: 20180711
  Serious: Yes (Other)
  Sender: FDA-Public Use
  Company Number: CH-ABBVIE-18K-151-2401028-00

PATIENT
  Sex: Male

DRUGS (4)
  1. DUODOPA [Suspect]
     Active Substance: CARBIDOPA\LEVODOPA
     Dosage: MD: 6ML, CR 2.1ML/H, ED: 1ML (16H THERAPY)
     Route: 050
     Dates: start: 20180525
  2. DUODOPA [Suspect]
     Active Substance: CARBIDOPA\LEVODOPA
     Dosage: MD:  6ML, CR: 2.3ML/H, ED : 1ML ( 16H THERAPY)
     Route: 050
     Dates: start: 20161117, end: 20171018
  3. DUODOPA [Suspect]
     Active Substance: CARBIDOPA\LEVODOPA
     Dosage: MD: 6ML, CR: 1.9ML/H, ED : 1ML, BLOCKING TIME 2HOURS (16H THERAPY)
     Route: 050
     Dates: start: 20171018, end: 20180525
  4. DUODOPA [Suspect]
     Active Substance: CARBIDOPA\LEVODOPA
     Indication: PARKINSON^S DISEASE
     Route: 050
     Dates: start: 20150302, end: 20161117

REACTIONS (2)
  - Dyskinesia [Not Recovered/Not Resolved]
  - Cataract [Unknown]
